FAERS Safety Report 22614508 (Version 8)
Quarter: 2024Q1

REPORT INFORMATION
  Report Type: Other
  Country: AT (occurrence: None)
  Receive Date: 20230619
  Receipt Date: 20240123
  Transmission Date: 20240409
  Serious: Yes (Hospitalization)
  Sender: FDA-Public Use
  Company Number: AT-ROCHE-3369554

PATIENT
  Age: 63 Year
  Sex: Female
  Weight: 65 kg

DRUGS (73)
  1. HERCEPTIN [Suspect]
     Active Substance: TRASTUZUMAB
     Indication: HER2 positive breast cancer
     Route: 042
     Dates: start: 20180627, end: 20180627
  2. HERCEPTIN [Suspect]
     Active Substance: TRASTUZUMAB
     Route: 042
     Dates: start: 20190205, end: 20201111
  3. HERCEPTIN [Suspect]
     Active Substance: TRASTUZUMAB
     Route: 042
     Dates: start: 20201202, end: 20220422
  4. HERCEPTIN [Suspect]
     Active Substance: TRASTUZUMAB
     Route: 042
     Dates: start: 20180717, end: 20181217
  5. HERCEPTIN [Suspect]
     Active Substance: TRASTUZUMAB
     Indication: HER2 positive breast cancer
     Route: 058
     Dates: start: 20221104, end: 20230421
  6. HERCEPTIN [Suspect]
     Active Substance: TRASTUZUMAB
     Route: 058
     Dates: start: 20230710
  7. HERCEPTIN [Suspect]
     Active Substance: TRASTUZUMAB
     Route: 058
     Dates: start: 20220522, end: 20220522
  8. PERJETA [Suspect]
     Active Substance: PERTUZUMAB
     Indication: HER2 positive breast cancer
     Route: 042
     Dates: start: 20180627, end: 20180627
  9. PERJETA [Suspect]
     Active Substance: PERTUZUMAB
     Route: 042
     Dates: start: 20180717, end: 20181217
  10. PERJETA [Suspect]
     Active Substance: PERTUZUMAB
     Route: 042
     Dates: start: 20190205, end: 20201111
  11. PERJETA [Suspect]
     Active Substance: PERTUZUMAB
     Route: 042
     Dates: start: 20201202, end: 20220422
  12. XGEVA [Suspect]
     Active Substance: DENOSUMAB
     Indication: HER2 positive breast cancer
     Route: 058
     Dates: start: 20180628, end: 20230504
  13. TAXOTERE [Suspect]
     Active Substance: DOCETAXEL
     Indication: HER2 positive breast cancer
     Route: 042
     Dates: start: 20180627, end: 20181105
  14. AROMASIN [Suspect]
     Active Substance: EXEMESTANE
     Indication: HER2 positive breast cancer
     Dosage: O.D. - ONCE DAILY
     Route: 048
     Dates: start: 20230421
  15. FEMARA [Suspect]
     Active Substance: LETROZOLE
     Indication: HER2 positive breast cancer
     Route: 048
     Dates: start: 20181130, end: 202211
  16. DIPHENHYDRAMINE HYDROCHLORIDE [Concomitant]
     Active Substance: DIPHENHYDRAMINE HYDROCHLORIDE
     Dosage: ONGOING = CHECKED
     Dates: start: 20180626
  17. DEXAMETHASONE [Concomitant]
     Active Substance: DEXAMETHASONE
     Dosage: ONGOING = CHECKED
     Dates: start: 20180626
  18. ZOFRAN [Concomitant]
     Active Substance: ONDANSETRON HYDROCHLORIDE
     Dosage: ONGOING = CHECKED
     Dates: start: 20180626
  19. ZOFRAN [Concomitant]
     Active Substance: ONDANSETRON HYDROCHLORIDE
     Dosage: ONGOING = CHECKED
     Dates: start: 20230528, end: 20230528
  20. XGEVA [Concomitant]
     Active Substance: DENOSUMAB
     Dosage: ONGOING = NOT CHECKED
     Dates: start: 20180628, end: 20230504
  21. NEXIUM [Concomitant]
     Active Substance: ESOMEPRAZOLE MAGNESIUM
     Dosage: ONGOING = CHECKED
     Dates: start: 20180719
  22. VOLTAREN [Concomitant]
     Active Substance: DICLOFENAC SODIUM
     Dosage: ONGOING = CHECKED
     Dates: start: 20180816
  23. CLINDAMYCIN [Concomitant]
     Active Substance: CLINDAMYCIN
     Dosage: ONGOING = CHECKED
     Dates: start: 20190205
  24. ASCORBIC ACID\CALCIUM PHOSPHATE\CHOLECALCIFEROL\CITRIC ACID MONOHYDRAT [Concomitant]
     Active Substance: ASCORBIC ACID\CALCIUM PHOSPHATE\CHOLECALCIFEROL\CITRIC ACID MONOHYDRATE
     Indication: Ileus paralytic
     Dosage: ONGOING = CHECKED
     Dates: start: 20190409
  25. DAFLON [Concomitant]
     Dosage: ONGOING = CHECKED
     Dates: start: 20190509
  26. BISOPROLOL FUMARATE [Concomitant]
     Active Substance: BISOPROLOL FUMARATE
     Dosage: ONGOING = CHECKED
     Dates: start: 20200817
  27. NOREPINEPHRINE HYDROCHLORIDE, (+/-)- [Concomitant]
     Active Substance: NOREPINEPHRINE HYDROCHLORIDE, (+/-)-
     Indication: Ileus paralytic
     Dosage: ONGOING = NOT CHECKED
     Dates: start: 20230505, end: 20230525
  28. BERODUALIN [Concomitant]
     Indication: Pneumonia
     Dosage: ONGOING = NOT CHECKED
     Dates: start: 20230505, end: 20230531
  29. NEOSTIGMINE [Concomitant]
     Active Substance: NEOSTIGMINE
     Indication: Ileus paralytic
     Dosage: ONGOING = NOT CHECKED
     Dates: start: 20230505, end: 20230519
  30. SMOFKABIVEN PERI [Concomitant]
     Indication: Ileus paralytic
     Dosage: ONGOING = NOT CHECKED
     Dates: start: 20230507, end: 20230524
  31. ERYTHROMYCIN [Concomitant]
     Active Substance: ERYTHROMYCIN
     Indication: Ileus paralytic
     Dosage: ONGOING = NOT CHECKED
     Dates: start: 20230509, end: 20230512
  32. PASPERTIN [Concomitant]
     Indication: Ileus paralytic
     Dosage: ONGOING = NOT CHECKED
     Dates: start: 20230511, end: 20230525
  33. FENTANYL [Concomitant]
     Active Substance: FENTANYL\FENTANYL CITRATE
     Indication: Ileus paralytic
     Dosage: ONGOING = NOT CHECKED
     Dates: start: 20230512, end: 20230512
  34. KETANEST [Concomitant]
     Indication: Ileus paralytic
     Dosage: ONGOING = NOT CHECKED
     Dates: start: 20230512, end: 20230512
  35. CLONIDINE [Concomitant]
     Active Substance: CLONIDINE
     Indication: Ileus paralytic
     Dosage: ONGOING = NOT CHECKED
     Dates: start: 20230513, end: 20230523
  36. SERTRALINE HYDROCHLORIDE [Concomitant]
     Active Substance: SERTRALINE HYDROCHLORIDE
     Indication: Ileus paralytic
     Dosage: ONGOING = CHECKED
     Dates: start: 20230513
  37. BRICANYL [Concomitant]
     Active Substance: TERBUTALINE SULFATE
     Indication: Ileus paralytic
     Dosage: ONGOING = NOT CHECKED
     Dates: start: 20230514, end: 20230518
  38. GASTROMIRO [Concomitant]
     Indication: Ileus paralytic
     Dosage: ONGOING = NOT CHECKED
     Dates: start: 20230514, end: 20230517
  39. POLYETHYLENE GLYCOL 3350\POTASSIUM CHLORIDE\SODIUM BICARBONATE\SODIUM [Concomitant]
     Active Substance: POLYETHYLENE GLYCOL 3350\POTASSIUM CHLORIDE\SODIUM BICARBONATE\SODIUM CHLORIDE
     Indication: Ileus paralytic
     Dosage: ONGOING = NOT CHECKED
     Dates: start: 20230514, end: 20230525
  40. PULMICORT TURBUHALER [Concomitant]
     Active Substance: BUDESONIDE
     Indication: Ileus paralytic
     Dosage: ONGOING = NOT CHECKED
     Dates: start: 20230514, end: 20230518
  41. GENTAMICIN SULFATE [Concomitant]
     Active Substance: GENTAMICIN SULFATE
     Indication: Ileus paralytic
     Dosage: ONGOING = NOT CHECKED
     Dates: start: 20230515, end: 20230525
  42. DORMICUM [Concomitant]
     Indication: Ileus paralytic
     Dosage: ONGOING = NOT CHECKED
     Dates: start: 20230516, end: 20230518
  43. NALOXEGOL OXALATE [Concomitant]
     Active Substance: NALOXEGOL OXALATE
     Indication: Ileus paralytic
     Dosage: ONGOING = NOT CHECKED
     Dates: start: 20230516, end: 20230525
  44. SUFENTANIL [Concomitant]
     Active Substance: SUFENTANIL
     Indication: Ileus paralytic
     Dosage: ONGOING = NOT CHECKED
     Dates: start: 20230516, end: 20230518
  45. LASIX [Concomitant]
     Active Substance: FUROSEMIDE
     Indication: Sepsis
     Dosage: ONGOING = NOT CHECKED
     Dates: start: 20230518, end: 20230530
  46. CEFEPIME HYDROCHLORIDE [Concomitant]
     Active Substance: CEFEPIME HYDROCHLORIDE
     Indication: Sepsis
     Dosage: ONGOING = NOT CHECKED
     Dates: start: 20230519, end: 20230529
  47. HYPOTRIT [Concomitant]
     Indication: Sepsis
     Dosage: ONGOING = NOT CHECKED
     Dates: start: 20230521, end: 20230531
  48. FLUCONAZOLE [Concomitant]
     Active Substance: FLUCONAZOLE
     Indication: Sepsis
     Dosage: ONGOING = NOT CHECKED
     Dates: start: 20230522, end: 20230530
  49. POTASSIUM CHLORIDE [Concomitant]
     Active Substance: POTASSIUM CHLORIDE
     Indication: Ileus paralytic
     Dosage: ONGOING = NOT CHECKED
     Dates: start: 20230522, end: 20230525
  50. PERFALGAN [Concomitant]
     Active Substance: ACETAMINOPHEN
     Indication: Sepsis
     Dosage: ONGOING = NOT CHECKED
     Dates: start: 20230522, end: 20230530
  51. MORPHINE [Concomitant]
     Active Substance: MORPHINE
     Indication: Ileus paralytic
     Dosage: ONGOING = NOT CHECKED
     Dates: start: 20230522, end: 20230525
  52. CLONIDINE [Concomitant]
     Active Substance: CLONIDINE
     Indication: Ileus paralytic
     Dosage: ONGOING = NOT CHECKED
     Dates: start: 20230523, end: 20230523
  53. KALIORAL (AUSTRIA) [Concomitant]
     Indication: Ileus paralytic
     Dosage: ONGOING = NOT CHECKED
     Dates: start: 20230523, end: 20230524
  54. NEPRESOL [Concomitant]
     Indication: Ileus paralytic
     Dosage: ONGOING = NOT CHECKED
     Dates: start: 20230523, end: 20230523
  55. NOVALGIN (AUSTRIA) [Concomitant]
     Indication: Sepsis
     Dosage: ONGOING = NOT CHECKED
     Dates: start: 20230523, end: 20230529
  56. ACEMIN (AUSTRIA) [Concomitant]
     Indication: Sepsis
     Dosage: ONGOING = NOT CHECKED
     Dates: start: 20230525, end: 20230601
  57. ELOZELL FORTE [Concomitant]
     Indication: Sepsis
     Dosage: ONGOING = NOT CHECKED
     Dates: start: 20230525, end: 20230531
  58. FUROSEMIDE\SPIRONOLACTONE [Concomitant]
     Active Substance: FUROSEMIDE\SPIRONOLACTONE
     Indication: Sepsis
     Dosage: ONGOING = NOT CHECKED
     Dates: start: 20230525, end: 20230601
  59. XIPAMIDE [Concomitant]
     Active Substance: XIPAMIDE
     Indication: Ileus paralytic
     Dosage: ONGOING = NOT CHECKED
     Dates: start: 20230526, end: 20230601
  60. SEROQUEL [Concomitant]
     Active Substance: QUETIAPINE FUMARATE
     Indication: Sepsis
     Dosage: ONGOING = NOT CHECKED
     Dates: start: 20230526, end: 20230601
  61. MELPERONE HYDROCHLORIDE [Concomitant]
     Active Substance: MELPERONE HYDROCHLORIDE
     Indication: Ileus paralytic
     Dosage: ONGOING = NOT CHECKED
     Dates: start: 20230527, end: 20230601
  62. MELPERONE HYDROCHLORIDE [Concomitant]
     Active Substance: MELPERONE HYDROCHLORIDE
     Indication: Ileus paralytic
     Dosage: ONGOING = CHECKED
     Dates: start: 20230602
  63. INDERAL [Concomitant]
     Active Substance: PROPRANOLOL HYDROCHLORIDE
     Indication: Sepsis
     Dosage: ONGOING = NOT CHECKED
     Dates: start: 20230527, end: 20230601
  64. MAGNESIUM CARBONATE\MAGNESIUM OXIDE [Concomitant]
     Active Substance: MAGNESIUM CARBONATE\MAGNESIUM OXIDE
     Indication: Sepsis
     Dosage: ONGOING = NOT CHECKED
     Dates: start: 20230527, end: 20230601
  65. MELATONIN [Concomitant]
     Active Substance: MELATONIN
     Indication: Ileus paralytic
     Dosage: ONGOING = NOT CHECKED
     Dates: start: 20230527, end: 20230601
  66. METASOL [Concomitant]
     Active Substance: BENZOPHENONE\HYDROQUINONE
     Indication: Ileus paralytic
     Dosage: ONGOING = NOT CHECKED
     Dates: start: 20230527, end: 20230527
  67. PROPOFOL [Concomitant]
     Active Substance: PROPOFOL
     Indication: Ileus paralytic
     Dosage: ONGOING = NOT CHECKED
     Dates: start: 20230527, end: 20230527
  68. NICOTINELL [Concomitant]
     Active Substance: NICOTINE
     Indication: Sepsis
     Dosage: ONGOING = NOT CHECKED
     Dates: start: 20230528, end: 20230601
  69. TEMESTA [Concomitant]
     Indication: Sepsis
     Dosage: ONGOING = NOT CHECKED
     Dates: start: 20230528, end: 20230528
  70. TRAZODONE HYDROCHLORIDE [Concomitant]
     Active Substance: TRAZODONE HYDROCHLORIDE
     Indication: Sepsis
     Dosage: ONGOING = NOT CHECKED
     Dates: start: 20230528, end: 20230601
  71. OXAZEPAM [Concomitant]
     Active Substance: OXAZEPAM
     Indication: Sepsis
     Dosage: ONGOING = NOT CHECKED
     Dates: start: 20230529, end: 20230530
  72. ESOMEPRAZOLE [Concomitant]
     Active Substance: ESOMEPRAZOLE
     Indication: Ileus paralytic
     Dosage: ONGOING = CHECKED
     Dates: start: 20230601
  73. ETILEFRINE HYDROCHLORIDE [Concomitant]
     Active Substance: ETILEFRINE HYDROCHLORIDE
     Indication: Sepsis
     Dosage: ONGOING = NOT CHECKED
     Dates: start: 20230601, end: 20230601

REACTIONS (4)
  - Volvulus [Recovered/Resolved]
  - Sepsis [Recovered/Resolved]
  - Ileus paralytic [Recovered/Resolved]
  - Pneumonia [Recovered/Resolved]

NARRATIVE: CASE EVENT DATE: 20230502
